FAERS Safety Report 10168721 (Version 4)
Quarter: 2015Q2

REPORT INFORMATION
  Report Type: Report from Study
  Country: CZ (occurrence: CZ)
  Receive Date: 20140513
  Receipt Date: 20150410
  Transmission Date: 20150821
  Serious: Yes (Hospitalization, Other)
  Sender: FDA-Public Use
  Company Number: CZ-ROCHE-1381523

PATIENT
  Age: 71 Year
  Sex: Male

DRUGS (11)
  1. BETADINE [Concomitant]
     Active Substance: POVIDONE-IODINE
  2. APO-ATORVASTATIN [Concomitant]
     Active Substance: ATORVASTATIN
     Route: 065
  3. APO-ALLOPURINOL [Concomitant]
     Active Substance: ALLOPURINOL
     Route: 065
  4. RANIBIZUMAB [Suspect]
     Active Substance: RANIBIZUMAB
     Indication: AGE-RELATED MACULAR DEGENERATION
     Route: 050
     Dates: start: 2010, end: 20140402
  5. APO-AMLO [Concomitant]
     Route: 065
  6. DIGOXIN. [Concomitant]
     Active Substance: DIGOXIN
     Route: 065
  7. AESCIN [Concomitant]
     Route: 065
  8. RANIBIZUMAB [Suspect]
     Active Substance: RANIBIZUMAB
     Dosage: LEFT EYE, 10 MG/ML
     Route: 050
     Dates: start: 20140402
  9. MICARDIS [Concomitant]
     Active Substance: TELMISARTAN
     Route: 065
  10. VITAMIN C [Concomitant]
     Active Substance: ASCORBIC ACID
  11. FLOXAL [Concomitant]
     Active Substance: OFLOXACIN
     Route: 065
     Dates: start: 20140330

REACTIONS (2)
  - C-reactive protein increased [Unknown]
  - Endophthalmitis [Recovered/Resolved with Sequelae]

NARRATIVE: CASE EVENT DATE: 20140404
